FAERS Safety Report 20927088 (Version 1)
Quarter: 2022Q2

REPORT INFORMATION
  Report Type: Spontaneous
  Country: US (occurrence: US)
  Receive Date: 20220607
  Receipt Date: 20220607
  Transmission Date: 20220721
  Serious: No
  Sender: FDA-Public Use
  Company Number: US-PERRIGO-21US029030

PATIENT
  Age: 77 Year
  Sex: Female
  Weight: 81.633 kg

DRUGS (1)
  1. MINOXIDIL [Suspect]
     Active Substance: MINOXIDIL
     Indication: Alopecia
     Dosage: 0.5 CAPFUL, BID
     Route: 061
     Dates: end: 20210924

REACTIONS (2)
  - Inappropriate schedule of product administration [Recovered/Resolved]
  - Wrong technique in product usage process [Unknown]

NARRATIVE: CASE EVENT DATE: 20210917
